FAERS Safety Report 10956171 (Version 4)
Quarter: 2016Q3

REPORT INFORMATION
  Report Type: Spontaneous
  Country: None (occurrence: DK)
  Receive Date: 20150324
  Receipt Date: 20160825
  Transmission Date: 20161109
  Serious: Yes (Hospitalization)
  Sender: FDA-Public Use
  Company Number: 20150768

PATIENT
  Age: 60 Year
  Sex: Female
  Weight: 66 kg

DRUGS (7)
  1. METHOTREXATE. [Suspect]
     Active Substance: METHOTREXATE
     Indication: PSORIATIC ARTHROPATHY
     Route: 058
     Dates: start: 20121026
  2. PINEX [Concomitant]
     Active Substance: ACETAMINOPHEN
  3. LEVOTHYROXINE SODIUM. [Concomitant]
     Active Substance: LEVOTHYROXINE SODIUM
  4. FOLIC ACID. [Concomitant]
     Active Substance: FOLIC ACID
  5. OXYCODONE HYDCHLORIDE [Concomitant]
     Active Substance: OXYCODONE HYDROCHLORIDE
  6. PREDNISOLONE. [Concomitant]
     Active Substance: PREDNISOLONE
     Route: 048
     Dates: start: 20110819
  7. SIMPONI [Suspect]
     Active Substance: GOLIMUMAB
     Route: 058
     Dates: start: 20111104, end: 20150216

REACTIONS (2)
  - Lung lobectomy [Recovered/Resolved]
  - Lung adenocarcinoma [Recovered/Resolved]

NARRATIVE: CASE EVENT DATE: 20141230
